FAERS Safety Report 8499031-4 (Version None)
Quarter: 2012Q3

REPORT INFORMATION
  Report Type: 
  Country: None (occurrence: None)
  Receive Date: 20120710
  Receipt Date: 20120625
  Transmission Date: 20120928
  Serious: Yes (Other)
  Sender: FDA-Public Use
  Company Number: NL-RANBAXY-2012R1-57257

PATIENT
  Sex: Female

DRUGS (4)
  1. PREDNISONE [Suspect]
     Indication: ASTHMA
     Dosage: 15MG/DAY
     Route: 065
  2. NAPROXEN [Suspect]
     Indication: PAIN
     Dosage: 500MG TID
     Route: 065
  3. PREDNISONE [Suspect]
     Dosage: UNK
  4. NAPROXEN [Suspect]
     Indication: MYOPATHY

REACTIONS (4)
  - CUSHING'S SYNDROME [None]
  - OSTEOPOROSIS [None]
  - DIABETES MELLITUS [None]
  - HYPOALDOSTERONISM [None]
